FAERS Safety Report 4939543-0 (Version None)
Quarter: 2006Q1

REPORT INFORMATION
  Report Type: 
  Country: None (occurrence: None)
  Receive Date: 20060303
  Receipt Date: 20060303
  Transmission Date: 20060701
  Serious: Yes (Death, Hospitalization)
  Sender: FDA-Public Use
  Company Number: None

PATIENT
  Age: 55 Year
  Sex: Male
  Weight: 90 kg

DRUGS (3)
  1. IMMUNE CELLS HUMAN [Suspect]
     Indication: COLORECTAL CANCER METASTATIC
     Dosage: 1 ML SQ Q 3WKS X 3
     Route: 058
     Dates: start: 20051108, end: 20051129
  2. IMMUNE CELLS HUMAN [Suspect]
     Indication: COLORECTAL CANCER METASTATIC
     Dosage: 1 ML SQ Q 3WKS X 3
     Route: 058
     Dates: start: 20051220
  3. IMMUNE CELLS HUMAN [Suspect]
     Indication: COLORECTAL CANCER METASTATIC
     Dosage: 5 MILLION CELLS
     Dates: start: 20051031

REACTIONS (3)
  - BLOOD CREATINE INCREASED [None]
  - COLORECTAL CANCER METASTATIC [None]
  - MALIGNANT NEOPLASM PROGRESSION [None]
